FAERS Safety Report 7978783-3 (Version None)
Quarter: 2011Q4

REPORT INFORMATION
  Report Type: 
  Country: None (occurrence: None)
  Receive Date: 20111214
  Receipt Date: 20111205
  Transmission Date: 20120403
  Serious: Yes (Hospitalization, Other)
  Sender: FDA-Public Use
  Company Number: CA-BRISTOL-MYERS SQUIBB COMPANY-16126310

PATIENT
  Age: 90 Year
  Sex: Female

DRUGS (3)
  1. CYMBALTA [Concomitant]
     Indication: DEPRESSION
  2. COUMADIN [Suspect]
     Indication: HEART VALVE REPLACEMENT
     Dosage: INF:3 IN LAST 4 MONTH,29NOV11,30NOV11 SHE TOOK NO COUMADIN, 01DEC11 TO 04DEC11 THEN 5MG
     Dates: start: 19780101
  3. CALCIUM [Concomitant]

REACTIONS (4)
  - INTERNATIONAL NORMALISED RATIO ABNORMAL [None]
  - HIP FRACTURE [None]
  - CYSTITIS [None]
  - URINARY TRACT INFECTION [None]
